FAERS Safety Report 11831192 (Version 1)
Quarter: 2015Q4

REPORT INFORMATION
  Report Type: Spontaneous
  Country: US (occurrence: None)
  Receive Date: 20151211
  Receipt Date: 20151211
  Transmission Date: 20160305
  Serious: Yes (Other)
  Sender: FDA-Public Use
  Company Number: None

PATIENT
  Age: 46 Year
  Sex: Female

DRUGS (1)
  1. GLATOPA [Suspect]
     Active Substance: GLATIRAMER ACETATE
     Indication: MULTIPLE SCLEROSIS
     Route: 058
     Dates: start: 20151113, end: 20151125

REACTIONS (4)
  - Euphoric mood [None]
  - Product substitution issue [None]
  - Feeling abnormal [None]
  - Thinking abnormal [None]

NARRATIVE: CASE EVENT DATE: 201511
